FAERS Safety Report 7202510-0 (Version None)
Quarter: 2010Q4

REPORT INFORMATION
  Report Type: 
  Country: None (occurrence: None)
  Receive Date: 20101229
  Receipt Date: 20101224
  Transmission Date: 20110411
  Serious: Yes (Death, Hospitalization, Other)
  Sender: FDA-Public Use
  Company Number: PHHY2010US87755

PATIENT
  Age: 50 Year
  Sex: Male

DRUGS (2)
  1. WARFARIN [Suspect]
     Indication: COAGULOPATHY
     Dosage: UNK
  2. WARFARIN [Suspect]
     Dosage: 2.5 MG/DAY
     Dates: start: 20070101, end: 20070801

REACTIONS (10)
  - CELLULITIS [None]
  - CELLULITIS GANGRENOUS [None]
  - HYPOTENSION [None]
  - LARGE INTESTINAL HAEMORRHAGE [None]
  - LEG AMPUTATION [None]
  - PAIN [None]
  - PENILE NECROSIS [None]
  - SKIN LESION [None]
  - SKIN NECROSIS [None]
  - VASCULAR CALCIFICATION [None]
